FAERS Safety Report 22035486 (Version 1)
Quarter: 2023Q1

REPORT INFORMATION
  Report Type: Spontaneous
  Country: US (occurrence: None)
  Receive Date: 20230223
  Receipt Date: 20230223
  Transmission Date: 20230418
  Serious: Yes (Other)
  Sender: FDA-Public Use
  Company Number: None

PATIENT
  Sex: Female

DRUGS (1)
  1. ROGAINE [Suspect]
     Active Substance: MINOXIDIL
     Dosage: FREQUENCY : TWICE A DAY;?

REACTIONS (7)
  - Headache [None]
  - Dizziness [None]
  - Somnolence [None]
  - Anxiety [None]
  - Paraesthesia [None]
  - Cardiac disorder [None]
  - Head discomfort [None]

NARRATIVE: CASE EVENT DATE: 20220914
